FAERS Safety Report 6672025-7 (Version None)
Quarter: 2010Q2

REPORT INFORMATION
  Report Type: 
  Country: None (occurrence: None)
  Receive Date: 20100407
  Receipt Date: 20100329
  Transmission Date: 20101027
  Serious: Yes (Death, Hospitalization)
  Sender: FDA-Public Use
  Company Number: GB-AMGEN-KDC401285

PATIENT
  Sex: Male
  Weight: 89.9 kg

DRUGS (2)
  1. PANITUMUMAB [Suspect]
     Indication: COLORECTAL CANCER
     Route: 042
     Dates: start: 20100311, end: 20100311
  2. IRINOTECAN HYDROCHLORIDE [Suspect]
     Route: 042
     Dates: start: 20100311, end: 20100311

REACTIONS (3)
  - ATRIAL FIBRILLATION [None]
  - NEUTROPENIC SEPSIS [None]
  - RENAL FAILURE ACUTE [None]
